FAERS Safety Report 9168243 (Version 1)
Quarter: 2013Q1

REPORT INFORMATION
  Report Type: Spontaneous
  Country: US (occurrence: None)
  Receive Date: 20130313
  Receipt Date: 20130313
  Transmission Date: 20140127
  Serious: Yes (Hospitalization)
  Sender: FDA-Public Use
  Company Number: None

PATIENT
  Sex: 0

DRUGS (1)
  1. VOTRIENT [Suspect]
     Indication: NEOPLASM MALIGNANT
     Route: 048
     Dates: start: 201302

REACTIONS (2)
  - Burning sensation [None]
  - Constipation [None]
